FAERS Safety Report 4452937-5 (Version None)
Quarter: 2004Q3

REPORT INFORMATION
  Report Type: 
  Country: None (occurrence: None)
  Receive Date: 20040916
  Receipt Date: 20040831
  Transmission Date: 20050211
  Serious: Yes (Hospitalization)
  Sender: FDA-Public Use
  Company Number: 195782

PATIENT
  Age: 56 Year
  Sex: Female

DRUGS (8)
  1. AVONEX [Suspect]
     Indication: MULTIPLE SCLEROSIS
     Dosage: 30 MCG QW IM
     Route: 030
     Dates: start: 20031201
  2. ZOLOFT [Concomitant]
  3. TRAZODONE HCL [Concomitant]
  4. AVAPRO [Concomitant]
  5. ASPIRIN [Concomitant]
  6. EVISTA [Concomitant]
  7. CALCIUM [Concomitant]
  8. ALVALIDE [Concomitant]

REACTIONS (5)
  - ATAXIA [None]
  - BLOOD PRESSURE DIASTOLIC DECREASED [None]
  - DEPRESSION [None]
  - FATIGUE [None]
  - OBESITY [None]
